FAERS Safety Report 5675587-1 (Version None)
Quarter: 2008Q1

REPORT INFORMATION
  Report Type: 
  Country: None (occurrence: None)
  Receive Date: 20080321
  Receipt Date: 20080313
  Transmission Date: 20080703
  Serious: Yes (Other)
  Sender: FDA-Public Use
  Company Number: US-JNJFOC-20080303947

PATIENT
  Sex: Male
  Weight: 81.65 kg

DRUGS (5)
  1. DURAGESIC-100 [Suspect]
     Route: 062
  2. DURAGESIC-100 [Suspect]
     Indication: PAIN
     Route: 062
  3. OXYCODONE HCL [Concomitant]
     Indication: BREAKTHROUGH PAIN
     Route: 048
  4. KEPPRA [Concomitant]
     Indication: CONVULSION
     Route: 048
  5. LAMICTAL [Concomitant]
     Indication: CONVULSION
     Route: 048

REACTIONS (7)
  - DRUG EFFECT DECREASED [None]
  - FALL [None]
  - FEELING ABNORMAL [None]
  - RESPIRATORY ARREST [None]
  - RESPIRATORY DEPRESSION [None]
  - SOMNOLENCE [None]
  - THERAPY CESSATION [None]
